FAERS Safety Report 6622772-8 (Version None)
Quarter: 2010Q1

REPORT INFORMATION
  Report Type: 
  Country: None (occurrence: None)
  Receive Date: 20100304
  Receipt Date: 20100222
  Transmission Date: 20100710
  Serious: Yes (Death, Other)
  Sender: FDA-Public Use
  Company Number: 2009EU004243

PATIENT
  Age: 43 Year
  Sex: Male
  Weight: 104 kg

DRUGS (14)
  1. PROGRAF [Suspect]
     Indication: TRANSPLANT REJECTION
     Dosage: 4 MG, UID/QD, ORAL; 5 MG/ML, UID/QD, IV NOS; 4 MG, UID/QD, SUBLINGUAL
     Route: 048
     Dates: end: 20091026
  2. PROGRAF [Suspect]
     Indication: TRANSPLANT REJECTION
     Dosage: 4 MG, UID/QD, ORAL; 5 MG/ML, UID/QD, IV NOS; 4 MG, UID/QD, SUBLINGUAL
     Route: 048
     Dates: start: 20091027, end: 20091029
  3. PROGRAF [Suspect]
     Indication: TRANSPLANT REJECTION
     Dosage: 4 MG, UID/QD, ORAL; 5 MG/ML, UID/QD, IV NOS; 4 MG, UID/QD, SUBLINGUAL
     Route: 048
     Dates: start: 20091103, end: 20091111
  4. CELLCEPT [Concomitant]
  5. CERTICAN [Concomitant]
  6. MIDAZOLAM HCL [Concomitant]
  7. SUFENTA PRESERVATIVE FREE [Concomitant]
  8. NIMBEX [Concomitant]
  9. INSULINE (INSULIN PORCINE) [Concomitant]
  10. PRIMAXIN [Concomitant]
  11. INEXIUM (ESOMEPRAZOLE SODIUM) [Concomitant]
  12. AMIKIN [Concomitant]
  13. SALBUTAMOL (SALBUTAMOL) [Concomitant]
  14. VANCOMYCIN [Concomitant]

REACTIONS (6)
  - BLOOD CREATININE INCREASED [None]
  - HAEMODIALYSIS [None]
  - INCORRECT ROUTE OF DRUG ADMINISTRATION [None]
  - OFF LABEL USE [None]
  - SEPTIC SHOCK [None]
  - WRONG TECHNIQUE IN DRUG USAGE PROCESS [None]
